FAERS Safety Report 9214448 (Version 2)
Quarter: 2013Q4

REPORT INFORMATION
  Report Type: Spontaneous
  Country: US (occurrence: US)
  Receive Date: 20130405
  Receipt Date: 20131023
  Transmission Date: 20140711
  Serious: Yes (Hospitalization)
  Sender: FDA-Public Use
  Company Number: US-BAYER-2013-040535

PATIENT
  Age: 16 Year
  Sex: Female

DRUGS (6)
  1. YAZ [Suspect]
  2. OXCARBAZEPINE [Concomitant]
     Indication: BIPOLAR DISORDER
     Dosage: 350 MG, BID
     Route: 048
     Dates: start: 20100812
  3. IBUPROFEN [Concomitant]
     Indication: DYSMENORRHOEA
     Dosage: UNK
     Route: 048
     Dates: start: 20100812
  4. TRILEPTAL [Concomitant]
     Indication: BIPOLAR DISORDER
     Dosage: 300 MG, UNK
     Route: 048
     Dates: start: 20100814
  5. ZOSYN [Concomitant]
  6. LORTAB [Concomitant]

REACTIONS (3)
  - Gallbladder disorder [None]
  - Injury [None]
  - Cholecystitis acute [None]
